APPROVED DRUG PRODUCT: NYSTATIN AND TRIAMCINOLONE ACETONIDE
Active Ingredient: NYSTATIN; TRIAMCINOLONE ACETONIDE
Strength: 100,000 UNITS/GM;0.1%
Dosage Form/Route: CREAM;TOPICAL
Application: A214181 | Product #001 | TE Code: AT
Applicant: MACLEODS PHARMACEUTICALS LTD
Approved: Jul 13, 2022 | RLD: No | RS: No | Type: RX